FAERS Safety Report 22632452 (Version 1)
Quarter: 2023Q2

REPORT INFORMATION
  Report Type: Report from Study
  Country: US (occurrence: US)
  Receive Date: 20230623
  Receipt Date: 20230623
  Transmission Date: 20230721
  Serious: Yes (Hospitalization, Other)
  Sender: FDA-Public Use
  Company Number: US-002147023-NVSC2023US139278

PATIENT
  Age: 61 Year
  Sex: Female

DRUGS (1)
  1. ENTRESTO [Suspect]
     Active Substance: SACUBITRIL\VALSARTAN
     Indication: Product used for unknown indication
     Dosage: 1 DOSAGE FORM, BID
     Route: 048

REACTIONS (4)
  - Hypertrophic cardiomyopathy [Unknown]
  - Fibromyalgia [Unknown]
  - Overweight [Unknown]
  - Hypervolaemia [Unknown]
